FAERS Safety Report 8688550 (Version 2)
Quarter: 2013Q2

REPORT INFORMATION
  Report Type: Spontaneous
  Country: US (occurrence: US)
  Receive Date: 20120727
  Receipt Date: 20130604
  Transmission Date: 20140414
  Serious: No
  Sender: FDA-Public Use
  Company Number: US-ASTRAZENECA-2011SE65119

PATIENT
  Age: 50 Year
  Sex: Female
  Weight: 77.1 kg

DRUGS (4)
  1. SEROQUEL XR [Suspect]
     Indication: DEPRESSION
     Route: 048
     Dates: start: 201003
  2. SEROQUEL XR [Suspect]
     Indication: DEPRESSION
     Route: 048
  3. CYMBALTA [Concomitant]
  4. ZIRTEC [Concomitant]
     Indication: MULTIPLE ALLERGIES

REACTIONS (3)
  - Hangover [Unknown]
  - Irritability [Unknown]
  - Weight increased [Unknown]
